FAERS Safety Report 5276609-2 (Version None)
Quarter: 2007Q1

REPORT INFORMATION
  Report Type: 
  Country: None (occurrence: None)
  Receive Date: 20070327
  Receipt Date: 20070314
  Transmission Date: 20070707
  Serious: Yes (Other)
  Sender: FDA-Public Use
  Company Number: PHBS2007FI04623

PATIENT
  Age: 78 Year
  Sex: Female

DRUGS (2)
  1. DIOVAN COMP [Suspect]
     Dosage: 160 MG VAL/12.5 MG HCTZ
     Route: 048
  2. RENITEC COMP. [Suspect]

REACTIONS (5)
  - BLOOD PRESSURE INCREASED [None]
  - GAIT DISTURBANCE [None]
  - MUSCLE RIGIDITY [None]
  - MYALGIA [None]
  - POLYMYALGIA RHEUMATICA [None]
